FAERS Safety Report 7333211 (Version 11)
Quarter: 2015Q3

REPORT INFORMATION
  Report Type: Spontaneous
  Country: DE (occurrence: DE)
  Receive Date: 20100326
  Receipt Date: 20150724
  Transmission Date: 20151125
  Serious: Yes (Hospitalization, Other)
  Sender: FDA-Public Use
  Company Number: PHHY2010DE17478

PATIENT
  Age: 62 Year
  Sex: Male
  Weight: 112 kg

DRUGS (10)
  1. LEPONEX [Suspect]
     Active Substance: CLOZAPINE
     Dosage: 100 MG, QD
     Route: 048
  2. LEPONEX [Suspect]
     Active Substance: CLOZAPINE
     Dosage: 150 MG, QD
     Route: 048
     Dates: start: 201106
  3. LEPONEX [Suspect]
     Active Substance: CLOZAPINE
     Dosage: 125 MG, QD
     Route: 048
  4. DIAZEPAM. [Concomitant]
     Active Substance: DIAZEPAM
     Dosage: 2 DF, QHS (NIGTH)
     Route: 048
  5. LEPONEX [Suspect]
     Active Substance: CLOZAPINE
     Dosage: 300 MG, QD
     Route: 048
     Dates: start: 201505
  6. INVEGA [Concomitant]
     Active Substance: PALIPERIDONE
     Indication: PRODUCT USED FOR UNKNOWN INDICATION
     Dosage: 1 DF, QD (FOR SEVERAL WEEKS TO MONTHS)
     Route: 065
     Dates: start: 2010
  7. LEPONEX [Suspect]
     Active Substance: CLOZAPINE
     Indication: PSYCHOTIC DISORDER
     Dosage: 225 MG, QD (DAY TO NIGHT, AS REPORTED)
     Route: 048
     Dates: start: 1997
  8. DIAZEPAM. [Concomitant]
     Active Substance: DIAZEPAM
     Indication: PRODUCT USED FOR UNKNOWN INDICATION
     Dosage: 3 DF, QHS (NIGTH)
     Route: 048
  9. SEROQUEL [Concomitant]
     Active Substance: QUETIAPINE FUMARATE
     Indication: PRODUCT USED FOR UNKNOWN INDICATION
     Dosage: UNK
     Route: 065
  10. LEPONEX [Suspect]
     Active Substance: CLOZAPINE
     Dosage: 100 MG, QD
     Route: 048
     Dates: start: 201311

REACTIONS (18)
  - Cardiovascular insufficiency [Unknown]
  - Coagulopathy [Recovered/Resolved]
  - Haemoglobin decreased [Not Recovered/Not Resolved]
  - Sedation [Not Recovered/Not Resolved]
  - Respiratory depression [Unknown]
  - Hyperhidrosis [Recovered/Resolved]
  - Rales [Unknown]
  - Parkinsonism [Unknown]
  - Depression [Recovering/Resolving]
  - Neuroleptic malignant syndrome [Unknown]
  - Homocystinaemia [Recovering/Resolving]
  - Cardiac disorder [Unknown]
  - Hypersomnia [Unknown]
  - Type 2 diabetes mellitus [Not Recovered/Not Resolved]
  - Initial insomnia [Recovered/Resolved]
  - Fatigue [Recovering/Resolving]
  - Carcinoembryonic antigen increased [Not Recovered/Not Resolved]
  - Drug ineffective [Recovered/Resolved]

NARRATIVE: CASE EVENT DATE: 2010
